FAERS Safety Report 20437674 (Version 1)
Quarter: 2022Q1

REPORT INFORMATION
  Report Type: Spontaneous
  Country: US (occurrence: None)
  Receive Date: 20220205
  Receipt Date: 20220205
  Transmission Date: 20220424
  Serious: Yes (Other)
  Sender: FDA-Public Use
  Company Number: None

PATIENT
  Age: 27 Year
  Sex: Female

DRUGS (2)
  1. SOTROVIMAB [Suspect]
     Active Substance: SOTROVIMAB
  2. SOTROVIMAB [Concomitant]
     Active Substance: SOTROVIMAB
     Indication: Product used for unknown indication
     Dates: start: 20220205, end: 20220205

REACTIONS (3)
  - Dizziness [None]
  - Headache [None]
  - Chest pain [None]
